FAERS Safety Report 8156220-6 (Version None)
Quarter: 2012Q1

REPORT INFORMATION
  Report Type: 
  Country: None (occurrence: None)
  Receive Date: 20120222
  Receipt Date: 20120213
  Transmission Date: 20120608
  Serious: Yes (Other)
  Sender: FDA-Public Use
  Company Number: DE-PFIZER INC-2012043475

PATIENT
  Age: 65 Year
  Sex: Male

DRUGS (5)
  1. MARCUMAR [Concomitant]
  2. TROMCARDIN [Concomitant]
  3. LOSARTAN [Concomitant]
  4. AMIODARONE HCL [Suspect]
     Indication: ATRIAL FIBRILLATION
     Dosage: UNK
     Route: 048
     Dates: start: 20111221, end: 20120213
  5. DIGOXIN [Concomitant]

REACTIONS (1)
  - MYALGIA [None]
